FAERS Safety Report 8642601 (Version 9)
Quarter: 2013Q1

REPORT INFORMATION
  Report Type: Spontaneous
  Country: US (occurrence: US)
  Receive Date: 20120629
  Receipt Date: 20130226
  Transmission Date: 20140127
  Serious: Yes (Hospitalization, Other)
  Sender: FDA-Public Use
  Company Number: US-PFIZER INC-2012153282

PATIENT
  Age: 84 Year
  Sex: Female
  Weight: 56.69 kg

DRUGS (4)
  1. PROTONIX [Suspect]
     Indication: GASTROOESOPHAGEAL REFLUX DISEASE
     Dosage: 40 MG, 2X/DAY (1)
     Route: 048
     Dates: start: 2008, end: 201205
  2. METOPROLOL [Concomitant]
     Dosage: UNK
  3. RESTORIL [Concomitant]
     Dosage: UNK
  4. MEPROBAMATE [Concomitant]
     Dosage: UNK

REACTIONS (2)
  - Hip fracture [Unknown]
  - Blood cholesterol increased [Unknown]
